FAERS Safety Report 4448725-6 (Version None)
Quarter: 2004Q3

REPORT INFORMATION
  Report Type: 
  Country: None (occurrence: None)
  Receive Date: 20040909
  Receipt Date: 20040830
  Transmission Date: 20050211
  Serious: Yes (Life-Threatening, Hospitalization)
  Sender: FDA-Public Use
  Company Number: 2004EU001641

PATIENT
  Age: 63 Year
  Sex: Male

DRUGS (4)
  1. PROGRAF [Suspect]
     Indication: LUNG TRANSPLANT
     Dosage: 5.00 MG, D/ ORAL
     Route: 048
     Dates: start: 20021018, end: 20040129
  2. BACTRIM DS [Concomitant]
  3. CELLCEPT [Concomitant]
  4. PREDNISOLONE [Concomitant]

REACTIONS (5)
  - ABASIA [None]
  - CEREBRAL HAEMORRHAGE [None]
  - COMPLICATIONS OF TRANSPLANT SURGERY [None]
  - DEEP VEIN THROMBOSIS [None]
  - PULMONARY EMBOLISM [None]
